FAERS Safety Report 9477993 (Version 2)
Quarter: 2013Q3

REPORT INFORMATION
  Report Type: Spontaneous
  Country: US (occurrence: US)
  Receive Date: 20130827
  Receipt Date: 20130917
  Transmission Date: 20140515
  Serious: Yes (Other)
  Sender: FDA-Public Use
  Company Number: PHEH2013US017468

PATIENT
  Sex: Female

DRUGS (1)
  1. HYDROCHLOROTHIAZIDE,VALSARTAN [Suspect]
     Indication: HYPERTENSION
     Dosage: 1 DF (VALS 320 MG, HCTZ 25 MG) PER DAY
     Route: 048

REACTIONS (2)
  - Cardiac flutter [Recovering/Resolving]
  - Drug ineffective [Unknown]
